FAERS Safety Report 22148809 (Version 2)
Quarter: 2024Q1

REPORT INFORMATION
  Report Type: Spontaneous
  Country: US (occurrence: US)
  Receive Date: 20230328
  Receipt Date: 20240219
  Transmission Date: 20240410
  Serious: No
  Sender: FDA-Public Use
  Company Number: US-CTI BIOPHARMA-2023US03321

PATIENT

DRUGS (11)
  1. VONJO [Suspect]
     Active Substance: PACRITINIB
     Indication: Myelofibrosis
     Dosage: 200 MG, BID
     Route: 048
     Dates: start: 2022
  2. VONJO [Suspect]
     Active Substance: PACRITINIB
     Dosage: 300 MG, TID, 200MG AM+100MGPM
     Route: 048
  3. ESCITALOPRAM [Concomitant]
     Active Substance: ESCITALOPRAM OXALATE
  4. FAMOTIDINE [Concomitant]
     Active Substance: FAMOTIDINE
  5. HYDROCODONE [Concomitant]
     Active Substance: HYDROCODONE
  6. ALLOPURINOL [Concomitant]
     Active Substance: ALLOPURINOL
  7. NYSTATIN [Concomitant]
     Active Substance: NYSTATIN
  8. ONDANSETRON [Concomitant]
     Active Substance: ONDANSETRON
  9. PROCHLORPERAZINE [Concomitant]
     Active Substance: PROCHLORPERAZINE
  10. ROSUVASTATIN [Concomitant]
     Active Substance: ROSUVASTATIN
  11. DEFERASIROX [Concomitant]
     Active Substance: DEFERASIROX

REACTIONS (3)
  - Product dose omission issue [Unknown]
  - Diarrhoea [Not Recovered/Not Resolved]
  - Haemoglobin abnormal [Unknown]
